FAERS Safety Report 8908869 (Version 2)
Quarter: 2013Q1

REPORT INFORMATION
  Report Type: Spontaneous
  Country: US (occurrence: US)
  Receive Date: 20121114
  Receipt Date: 20130208
  Transmission Date: 20140127
  Serious: No
  Sender: FDA-Public Use
  Company Number: US-009507513-1211USA004744

PATIENT
  Age: 68 Year
  Sex: Female
  Weight: 92.52 kg

DRUGS (5)
  1. DULERA [Suspect]
     Indication: ASTHMA
     Dosage: DOSE: 2 PUFFS, BID
     Dates: start: 20120925
  2. LEVOTHYROXINE SODIUM [Concomitant]
     Dosage: 50 MICROGRAM, UNK
  3. METFORMIN [Concomitant]
     Dosage: DOSE: 50 UNITS
  4. ASMANEX TWISTHALER [Concomitant]
  5. VITAMINS (UNSPECIFIED) [Concomitant]

REACTIONS (1)
  - Anxiety [Recovered/Resolved]
